FAERS Safety Report 21857944 (Version 1)
Quarter: 2023Q1

REPORT INFORMATION
  Report Type: Report from Study
  Country: CA (occurrence: CA)
  Receive Date: 20230113
  Receipt Date: 20230113
  Transmission Date: 20230418
  Serious: Yes (Other)
  Sender: FDA-Public Use
  Company Number: CA-002147023-NVSC2023CA006488

PATIENT
  Sex: Female

DRUGS (1)
  1. HYRIMOZ [Suspect]
     Active Substance: ADALIMUMAB-ADAZ
     Indication: Crohn^s disease
     Dosage: 40 MG (PRE-FILLED SYRINGE)
     Route: 058
     Dates: start: 20220712

REACTIONS (5)
  - Uveitis [Unknown]
  - Abdominal mass [Unknown]
  - Arthralgia [Unknown]
  - Aphthous ulcer [Unknown]
  - Pain [Unknown]
